FAERS Safety Report 17811741 (Version 1)
Quarter: 2020Q2

REPORT INFORMATION
  Report Type: Spontaneous
  Country: US (occurrence: US)
  Receive Date: 20200521
  Receipt Date: 20200521
  Transmission Date: 20200714
  Serious: No
  Sender: FDA-Public Use
  Company Number: US-SA-2020SA129018

PATIENT
  Age: 58 Year
  Sex: Female

DRUGS (7)
  1. WELLBUTRIN [Concomitant]
     Active Substance: BUPROPION HYDROCHLORIDE
     Dosage: 100 MG
  2. AUBAGIO [Suspect]
     Active Substance: TERIFLUNOMIDE
     Indication: MULTIPLE SCLEROSIS
     Dosage: 14 MG, QD
     Route: 048
     Dates: start: 202003
  3. KLONOPIN [Concomitant]
     Active Substance: CLONAZEPAM
     Dosage: 0.5 MG
  4. TOPAMAX [Concomitant]
     Active Substance: TOPIRAMATE
  5. PRILOSEC [Concomitant]
     Active Substance: OMEPRAZOLE MAGNESIUM
     Dosage: 20 MG
  6. LOSARTAN POTASSIUM. [Concomitant]
     Active Substance: LOSARTAN POTASSIUM
     Dosage: 100 MG
  7. CYMBALTA [Concomitant]
     Active Substance: DULOXETINE HYDROCHLORIDE
     Dosage: 20 MG

REACTIONS (10)
  - Psychomotor hyperactivity [Unknown]
  - Fatigue [Unknown]
  - Dyspnoea [Unknown]
  - Sinusitis [Unknown]
  - Pyrexia [Unknown]
  - Chest pain [Unknown]
  - Hypervigilance [Unknown]
  - Hypersensitivity [Unknown]
  - Feeling abnormal [Unknown]
  - Skin disorder [Unknown]

NARRATIVE: CASE EVENT DATE: 202004
